FAERS Safety Report 8500180-2 (Version None)
Quarter: 2012Q3

REPORT INFORMATION
  Report Type: 
  Country: None (occurrence: None)
  Receive Date: 20120710
  Receipt Date: 20120704
  Transmission Date: 20120928
  Serious: Yes (Hospitalization, Other)
  Sender: FDA-Public Use
  Company Number: US-PFIZER INC-001-0991-M0001534

PATIENT
  Sex: Female

DRUGS (8)
  1. LASIX [Suspect]
     Indication: ILL-DEFINED DISORDER
     Dosage: DAILY
     Route: 065
  2. TICLID [Concomitant]
  3. CALAN [Suspect]
     Indication: ILL-DEFINED DISORDER
     Dosage: DAILY
     Route: 065
  4. POTASSIUM CHLORIDE [Concomitant]
  5. REZULIN [Suspect]
     Indication: TYPE 1 DIABETES MELLITUS
     Dosage: DAILY
     Route: 048
     Dates: start: 19990927
  6. ZESTRIL [Suspect]
     Indication: ILL-DEFINED DISORDER
     Dosage: DAILY
     Route: 065
  7. ZYLOPRIM [Concomitant]
  8. PROVENTIL [Concomitant]

REACTIONS (6)
  - PRESYNCOPE [None]
  - SYNCOPE [None]
  - FALL [None]
  - VISUAL ACUITY REDUCED [None]
  - ARRHYTHMIA [None]
  - BALANCE DISORDER [None]
